FAERS Safety Report 25412113 (Version 1)
Quarter: 2025Q2

REPORT INFORMATION
  Report Type: Spontaneous
  Country: DZ (occurrence: DZ)
  Receive Date: 20250609
  Receipt Date: 20250609
  Transmission Date: 20250716
  Serious: Yes (Death, Other)
  Sender: RANBAXY
  Company Number: DZ-SUN PHARMACEUTICAL INDUSTRIES LTD-2020R1-267619

PATIENT

DRUGS (2)
  1. OXALIPLATIN [Suspect]
     Active Substance: OXALIPLATIN
     Indication: Product used for unknown indication
     Route: 065
  2. OXALIPLATIN [Suspect]
     Active Substance: OXALIPLATIN
     Indication: Product used for unknown indication
     Route: 065

REACTIONS (4)
  - Haemorrhage [Fatal]
  - Thrombocytopenia [Fatal]
  - Petechiae [Fatal]
  - Aplastic anaemia [Fatal]
